FAERS Safety Report 6274732-7 (Version None)
Quarter: 2009Q3

REPORT INFORMATION
  Report Type: 
  Country: None (occurrence: None)
  Receive Date: 20090721
  Receipt Date: 20090720
  Transmission Date: 20100115
  Serious: Yes (Death, Hospitalization, Other)
  Sender: FDA-Public Use
  Company Number: US-RANBAXY-2009US-25144

PATIENT

DRUGS (2)
  1. ISOTRETINOIN [Suspect]
     Indication: SKIN CANCER
     Dosage: 10 MG, QD
     Route: 048
  2. ISOTRETINOIN [Suspect]
     Dosage: 20 MG, QD
     Route: 048

REACTIONS (3)
  - DEATH [None]
  - HOSPITALISATION [None]
  - OFF LABEL USE [None]
